FAERS Safety Report 5262604-6 (Version None)
Quarter: 2007Q1

REPORT INFORMATION
  Report Type: 
  Country: None (occurrence: None)
  Receive Date: 20070312
  Receipt Date: 20070308
  Transmission Date: 20070707
  Serious: Yes (Hospitalization)
  Sender: FDA-Public Use
  Company Number: CAWYE938508MAR07

PATIENT
  Sex: Male
  Weight: 94.7 kg

DRUGS (7)
  1. SIROLIMUS [Suspect]
     Indication: RENAL TRANSPLANT
     Route: 048
     Dates: start: 20061005
  2. LIPITOR [Concomitant]
     Indication: DYSLIPIDAEMIA
     Dosage: 40 MG
     Route: 048
     Dates: start: 20060101
  3. LANTUS [Concomitant]
     Indication: DIABETES MELLITUS
     Dosage: 32 IU
     Route: 058
  4. PREDNISONE [Concomitant]
     Indication: RENAL TRANSPLANT
     Dosage: 7.5 MG
     Route: 048
     Dates: start: 20060524
  5. NOVORAPID [Concomitant]
     Indication: DIABETES MELLITUS
     Dosage: 2-10 UNITS PRN
     Route: 058
  6. CELLCEPT [Concomitant]
     Indication: RENAL TRANSPLANT
     Dosage: 2 GRAMS
     Route: 048
     Dates: start: 20060524
  7. NORVASC [Concomitant]
     Indication: HYPERTENSION
     Dosage: 10 MG
     Route: 048
     Dates: start: 20050101

REACTIONS (1)
  - KIDNEY TRANSPLANT REJECTION [None]
